FAERS Safety Report 7067997-5 (Version None)
Quarter: 2010Q4

REPORT INFORMATION
  Report Type: 
  Country: None (occurrence: None)
  Receive Date: 20101027
  Receipt Date: 20101027
  Transmission Date: 20110411
  Serious: Yes (Other)
  Sender: FDA-Public Use
  Company Number: None

PATIENT
  Sex: Female
  Weight: 79.3795 kg

DRUGS (1)
  1. TETRACYCLINE [Suspect]
     Indication: ROSACEA
     Dosage: 2 TABS AM AND PM BID PO
     Route: 048
     Dates: start: 20060101, end: 20100101

REACTIONS (6)
  - CONDITION AGGRAVATED [None]
  - HEPATIC STEATOSIS [None]
  - LABORATORY TEST ABNORMAL [None]
  - LIVER FUNCTION TEST ABNORMAL [None]
  - ROSACEA [None]
  - STRESS [None]
